FAERS Safety Report 8339671-6 (Version None)
Quarter: 2012Q2

REPORT INFORMATION
  Report Type: 
  Country: None (occurrence: None)
  Receive Date: 20120507
  Receipt Date: 20120504
  Transmission Date: 20120825
  Serious: Yes (Death, Hospitalization)
  Sender: FDA-Public Use
  Company Number: PHEH2012US009460

PATIENT
  Sex: Female

DRUGS (2)
  1. RECLAST [Suspect]
     Indication: OSTEOPOROSIS
     Dosage: UNK UKN, UNK
     Route: 042
     Dates: start: 20100607
  2. PROLIA [Concomitant]
     Dosage: UNK UKN, UNK

REACTIONS (4)
  - FALL [None]
  - SPINAL COMPRESSION FRACTURE [None]
  - PAIN [None]
  - SEPSIS [None]
